FAERS Safety Report 9741806 (Version 1)
Quarter: 2013Q4

REPORT INFORMATION
  Report Type: Report from Study
  Country: BR (occurrence: BR)
  Receive Date: 20131210
  Receipt Date: 20131210
  Transmission Date: 20140711
  Serious: Yes (Hospitalization)
  Sender: FDA-Public Use
  Company Number: PHHY2013BR142491

PATIENT
  Sex: Female

DRUGS (1)
  1. EXELON [Suspect]

REACTIONS (5)
  - Liver disorder [Unknown]
  - Skin odour abnormal [Unknown]
  - Drug intolerance [Unknown]
  - Hypertension [Unknown]
  - Nausea [Unknown]
